FAERS Safety Report 5247036-9 (Version None)
Quarter: 2007Q1

REPORT INFORMATION
  Report Type: 
  Country: None (occurrence: None)
  Receive Date: 20070226
  Receipt Date: 20070219
  Transmission Date: 20070707
  Serious: Yes (Hospitalization)
  Sender: FDA-Public Use
  Company Number: NL-GLAXOSMITHKLINE-B0459737A

PATIENT
  Age: 55 Year
  Sex: Male
  Weight: 76 kg

DRUGS (1)
  1. SEROXAT [Suspect]
     Indication: DEPRESSION
     Dosage: 20MG PER DAY
     Route: 048
     Dates: start: 20010702

REACTIONS (3)
  - EJACULATION DISORDER [None]
  - LIBIDO DECREASED [None]
  - SUICIDE ATTEMPT [None]
